FAERS Safety Report 11965387 (Version 1)
Quarter: 2016Q1

REPORT INFORMATION
  Report Type: Spontaneous
  Country: US (occurrence: None)
  Receive Date: 20160122
  Receipt Date: 20160122
  Transmission Date: 20160526
  Serious: Yes (Disabling)
  Sender: FDA-Public Use
  Company Number: None

PATIENT
  Age: 69 Year
  Sex: Female
  Weight: 74.84 kg

DRUGS (3)
  1. XARELTO [Suspect]
     Active Substance: RIVAROXABAN
     Indication: ANTICOAGULANT THERAPY
     Dosage: ONCE DAILY WITH SUPPER
     Route: 048
     Dates: start: 20150526, end: 20151006
  2. BAYER [Concomitant]
     Active Substance: ASPIRIN
  3. METOPROLOL TART [Concomitant]
     Active Substance: METOPROLOL TARTRATE

REACTIONS (10)
  - Muscle spasms [None]
  - Pain in extremity [None]
  - Dysstasia [None]
  - Myalgia [None]
  - Middle insomnia [None]
  - Weight bearing difficulty [None]
  - Joint crepitation [None]
  - Musculoskeletal pain [None]
  - Chest pain [None]
  - Arthralgia [None]
